FAERS Safety Report 6883119-5 (Version None)
Quarter: 2010Q3

REPORT INFORMATION
  Report Type: 
  Country: None (occurrence: None)
  Receive Date: 20100708
  Receipt Date: 20100114
  Transmission Date: 20110219
  Serious: Yes (Other)
  Sender: FDA-Public Use
  Company Number: 2010005849

PATIENT
  Age: 50 Year
  Sex: Female
  Weight: 68 kg

DRUGS (5)
  1. CHANTIX [Suspect]
     Dosage: 0.5 MG, 1X/DAY, ORAL : 1 MG, 2X/DAY
     Dates: start: 20100101, end: 20100101
  2. CHANTIX [Suspect]
     Dosage: 0.5 MG, 1X/DAY, ORAL : 1 MG, 2X/DAY
     Dates: start: 20100101
  3. VISTARIL [Concomitant]
  4. PAXIL [Concomitant]
  5. LISINOPRIL [Concomitant]

REACTIONS (2)
  - HYPERSENSITIVITY [None]
  - SWOLLEN TONGUE [None]
